FAERS Safety Report 8304892-5 (Version None)
Quarter: 2012Q2

REPORT INFORMATION
  Report Type: 
  Country: None (occurrence: None)
  Receive Date: 20120423
  Receipt Date: 20120410
  Transmission Date: 20120825
  Serious: Yes (Hospitalization)
  Sender: FDA-Public Use
  Company Number: FR-CELGENEUS-056-21880-12041073

PATIENT
  Sex: Male
  Weight: 70 kg

DRUGS (9)
  1. DIAMICRON [Concomitant]
     Dosage: 100 MILLIGRAM
     Route: 048
     Dates: start: 20120403
  2. LEXOMIL [Concomitant]
     Indication: ANXIETY
     Dosage: 6 MILLIGRAM
     Route: 048
     Dates: start: 20120404
  3. LOSARTAN/HYDROCHLOROTIAZIDE [Concomitant]
     Indication: HYPERTENSION
     Dosage: 100 MILLIGRAM
     Route: 048
     Dates: start: 20120403
  4. AMIODARONE HCL [Concomitant]
     Indication: PROPHYLAXIS
     Dosage: 200 MILLIGRAM
     Route: 048
     Dates: start: 20120403
  5. URSODIOL [Concomitant]
     Indication: PROPHYLAXIS
     Dosage: 250 MILLIGRAM
     Route: 048
     Dates: start: 20120403
  6. LOSCON [Concomitant]
     Indication: HYPERTENSION
     Dosage: 100 MILLIGRAM
     Route: 048
     Dates: start: 20120403
  7. REVLIMID [Suspect]
     Indication: MYELODYSPLASTIC SYNDROME
     Dosage: 10 MILLIGRAM
     Route: 048
     Dates: start: 20120314, end: 20120329
  8. NEORECORMON [Suspect]
     Indication: MYELODYSPLASTIC SYNDROME
     Dates: start: 20120314
  9. METFORMIN HCL [Concomitant]
     Dosage: 850 MILLIGRAM
     Route: 048
     Dates: start: 20120403

REACTIONS (4)
  - BRONCHOPNEUMONIA [None]
  - THROMBOCYTOPENIA [None]
  - GENERAL PHYSICAL HEALTH DETERIORATION [None]
  - PYREXIA [None]
